FAERS Safety Report 5758415-5 (Version None)
Quarter: 2008Q2

REPORT INFORMATION
  Report Type: 
  Country: None (occurrence: None)
  Receive Date: 20080507
  Receipt Date: 20071024
  Transmission Date: 20081010
  Serious: Yes (Hospitalization)
  Sender: FDA-Public Use
  Company Number: 239169K07USA

PATIENT
  Age: 31 Year
  Sex: Female
  Weight: 43.0917 kg

DRUGS (5)
  1. REBIF [Suspect]
     Indication: MULTIPLE SCLEROSIS
     Dosage: 44 MCG, 3 IN 1 WEEKS
     Dates: start: 20070521
  2. ZOLOFT [Concomitant]
  3. PROTONIX [Concomitant]
  4. LISINOPRIL [Concomitant]
  5. DEPAKOTE [Concomitant]

REACTIONS (4)
  - BURNING SENSATION [None]
  - MULTIPLE SCLEROSIS RELAPSE [None]
  - PAIN IN EXTREMITY [None]
  - PARAESTHESIA [None]
